FAERS Safety Report 16562577 (Version 1)
Quarter: 2019Q3

REPORT INFORMATION
  Report Type: Spontaneous
  Country: US (occurrence: US)
  Receive Date: 20190711
  Receipt Date: 20190711
  Transmission Date: 20191004
  Serious: Yes (Hospitalization, Other)
  Sender: FDA-Public Use
  Company Number: US-MYLANLABS-2019M1064727

PATIENT
  Age: 66 Year
  Sex: Male

DRUGS (7)
  1. ITRACONAZOLE. [Suspect]
     Active Substance: ITRACONAZOLE
     Indication: HISTOPLASMOSIS
     Dosage: UNK
     Route: 065
  2. AMPHOTERICIN B DEOXYCHOLATE [Suspect]
     Active Substance: AMPHOTERICIN B
     Indication: HISTOPLASMOSIS DISSEMINATED
  3. PREDNISONE. [Suspect]
     Active Substance: PREDNISONE
     Indication: IMMUNOSUPPRESSANT DRUG THERAPY
     Route: 065
  4. INFLIXIMAB [Suspect]
     Active Substance: INFLIXIMAB
     Indication: IMMUNOSUPPRESSANT DRUG THERAPY
     Route: 065
  5. AMPHOTERICIN B DEOXYCHOLATE [Suspect]
     Active Substance: AMPHOTERICIN B
     Indication: HISTOPLASMOSIS
     Route: 065
  6. ITRACONAZOLE. [Suspect]
     Active Substance: ITRACONAZOLE
     Indication: HISTOPLASMOSIS DISSEMINATED
  7. ETANERCEPT [Suspect]
     Active Substance: ETANERCEPT
     Indication: IMMUNOSUPPRESSANT DRUG THERAPY
     Route: 065

REACTIONS (4)
  - Cardiac failure [Unknown]
  - Histoplasmosis disseminated [Not Recovered/Not Resolved]
  - Endocarditis histoplasma [Unknown]
  - Treatment failure [Unknown]
